FAERS Safety Report 19300123 (Version 5)
Quarter: 2024Q1

REPORT INFORMATION
  Report Type: Other
  Country: US (occurrence: None)
  Receive Date: 20210525
  Receipt Date: 20240208
  Transmission Date: 20240409
  Serious: Yes (Hospitalization, Other)
  Sender: FDA-Public Use
  Company Number: US-ROCHE-2831392

PATIENT
  Age: 69 Year
  Sex: Male
  Weight: 86.26 kg

DRUGS (11)
  1. OCREVUS [Suspect]
     Active Substance: OCRELIZUMAB
     Indication: Relapsing-remitting multiple sclerosis
     Dosage: 600 MG IV EVERY 6 MONTHS?LAST DOSE WAS 05/SEP/2023, DOT 24/JAN/2022
     Route: 042
     Dates: start: 20180504
  2. AMBIEN [Concomitant]
     Active Substance: ZOLPIDEM TARTRATE
     Route: 048
  3. FLUOXETINE [Concomitant]
     Active Substance: FLUOXETINE HYDROCHLORIDE
     Route: 048
  4. PREVACID [Concomitant]
     Active Substance: LANSOPRAZOLE
     Route: 048
  5. AMANTADINE [Concomitant]
     Active Substance: AMANTADINE
     Route: 048
  6. CYANOCOBALAMIN [Concomitant]
     Active Substance: CYANOCOBALAMIN
  7. LACTULOSE [Concomitant]
     Active Substance: LACTULOSE
  8. LISINOPRIL [Concomitant]
     Active Substance: LISINOPRIL
  9. MAGNESIUM GLUCONATE [Concomitant]
     Active Substance: MAGNESIUM GLUCONATE
  10. PROPAFENONE [Concomitant]
     Active Substance: PROPAFENONE
  11. DUTASTERIDE [Concomitant]
     Active Substance: DUTASTERIDE

REACTIONS (16)
  - Atrial fibrillation [Unknown]
  - Peripheral paralysis [Unknown]
  - Multiple sclerosis [Unknown]
  - Fall [Unknown]
  - Femur fracture [Recovered/Resolved]
  - Memory impairment [Not Recovered/Not Resolved]
  - Lymphocyte count decreased [Unknown]
  - JC polyomavirus test positive [Unknown]
  - Depression [Unknown]
  - Asthenia [Unknown]
  - Weight decreased [Unknown]
  - Malaise [Unknown]
  - Spinal disorder [Unknown]
  - Arthralgia [Not Recovered/Not Resolved]
  - Prostatomegaly [Recovered/Resolved]
  - Gait disturbance [Recovered/Resolved]

NARRATIVE: CASE EVENT DATE: 20200110
